FAERS Safety Report 13422649 (Version 1)
Quarter: 2017Q2

REPORT INFORMATION
  Report Type: Spontaneous
  Country: US (occurrence: US)
  Receive Date: 20170407
  Receipt Date: 20170407
  Transmission Date: 20170830
  Serious: No
  Sender: FDA-Public Use
  Company Number: None

PATIENT
  Sex: Male

DRUGS (2)
  1. IMATINIB [Suspect]
     Active Substance: IMATINIB
     Indication: CHRONIC MYELOID LEUKAEMIA
     Route: 048
     Dates: start: 201611, end: 201703
  2. IMATINIB [Suspect]
     Active Substance: IMATINIB
     Indication: CHRONIC MYELOID LEUKAEMIA
     Route: 048
     Dates: start: 201704

REACTIONS (6)
  - Diarrhoea [None]
  - Abdominal pain upper [None]
  - Therapy cessation [None]
  - Muscle spasms [None]
  - Therapy change [None]
  - Tremor [None]
